FAERS Safety Report 10239767 (Version 2)
Quarter: 2014Q2

REPORT INFORMATION
  Report Type: Spontaneous
  Country: US (occurrence: US)
  Receive Date: 20140616
  Receipt Date: 20140620
  Transmission Date: 20141212
  Serious: No
  Sender: FDA-Public Use
  Company Number: US-TEVA-488869USA

PATIENT
  Age: 29 Year
  Sex: Female
  Weight: 53.57 kg

DRUGS (2)
  1. TAKE ACTION [Suspect]
     Indication: POST COITAL CONTRACEPTION
     Dosage: 1.5 MILLIGRAM DAILY;
     Route: 048
     Dates: start: 20140610, end: 20140610
  2. TUMS [Concomitant]
     Indication: GASTROOESOPHAGEAL REFLUX DISEASE

REACTIONS (4)
  - Breast mass [Not Recovered/Not Resolved]
  - Toothache [Not Recovered/Not Resolved]
  - Breast pain [Not Recovered/Not Resolved]
  - Pelvic pain [Not Recovered/Not Resolved]
